FAERS Safety Report 17301853 (Version 5)
Quarter: 2020Q1

REPORT INFORMATION
  Report Type: Report from Study
  Country: FR (occurrence: FR)
  Receive Date: 20200122
  Receipt Date: 20200330
  Transmission Date: 20200409
  Serious: Yes (Life-Threatening, Other)
  Sender: FDA-Public Use
  Company Number: FR-CELGENEUS-FRA-20200104557

PATIENT
  Age: 58 Year
  Sex: Male
  Weight: 80 kg

DRUGS (13)
  1. ISTODAX [Suspect]
     Active Substance: ROMIDEPSIN
     Dosage: 14 MILLIGRAM/SQ. METER
     Route: 041
     Dates: start: 20200113
  2. DOXORUBICIN [Concomitant]
     Active Substance: DOXORUBICIN
     Indication: PRODUCT USED FOR UNKNOWN INDICATION
     Route: 065
     Dates: start: 201902
  3. CYCLOPHOSPHAMIDE. [Concomitant]
     Active Substance: CYCLOPHOSPHAMIDE
     Indication: PRODUCT USED FOR UNKNOWN INDICATION
     Route: 065
     Dates: start: 201902
  4. VINCRISTINE [Concomitant]
     Active Substance: VINCRISTINE
     Indication: PRODUCT USED FOR UNKNOWN INDICATION
     Route: 065
     Dates: start: 201902
  5. DEXAMETHASONE. [Concomitant]
     Active Substance: DEXAMETHASONE
     Indication: PRODUCT USED FOR UNKNOWN INDICATION
     Route: 065
     Dates: start: 201908
  6. ISTODAX [Suspect]
     Active Substance: ROMIDEPSIN
     Indication: ANGIOIMMUNOBLASTIC T-CELL LYMPHOMA
     Dosage: 10 MILLIGRAM/SQ. METER
     Route: 041
     Dates: start: 201910
  7. CYTARABINE. [Concomitant]
     Active Substance: CYTARABINE
     Indication: PRODUCT USED FOR UNKNOWN INDICATION
     Route: 065
     Dates: start: 201908
  8. DEXAMETHASONE. [Concomitant]
     Active Substance: DEXAMETHASONE
     Indication: QUADRIPARESIS
     Route: 065
  9. RITUXIMAB. [Concomitant]
     Active Substance: RITUXIMAB
     Indication: PRODUCT USED FOR UNKNOWN INDICATION
     Route: 065
     Dates: start: 201902
  10. PREDNISOLONE. [Concomitant]
     Active Substance: PREDNISOLONE
     Indication: PRODUCT USED FOR UNKNOWN INDICATION
     Route: 065
     Dates: start: 201902
  11. ISTODAX [Suspect]
     Active Substance: ROMIDEPSIN
     Dosage: 10 MILLIGRAM/SQ. METER
     Route: 041
     Dates: start: 20200113
  12. OXALIPLATIN. [Concomitant]
     Active Substance: OXALIPLATIN
     Indication: PRODUCT USED FOR UNKNOWN INDICATION
     Route: 065
     Dates: start: 201908
  13. BENDAMUSTINE [Concomitant]
     Active Substance: BENDAMUSTINE
     Indication: PRODUCT USED FOR UNKNOWN INDICATION
     Route: 065
     Dates: start: 201909

REACTIONS (4)
  - Quadriparesis [Recovering/Resolving]
  - Haematotoxicity [Unknown]
  - Thrombocytopenia [Recovering/Resolving]
  - Thrombocytopenia [Unknown]

NARRATIVE: CASE EVENT DATE: 201911
